FAERS Safety Report 5594759-8 (Version None)
Quarter: 2007Q4

REPORT INFORMATION
  Report Type: 
  Country: None (occurrence: None)
  Receive Date: 20071218
  Receipt Date: 20070221
  Transmission Date: 20080405
  Serious: Yes (Hospitalization, Other)
  Sender: FDA-Public Use
  Company Number: 2006000587

PATIENT
  Age: 65 Year
  Sex: Male
  Weight: 95.3 kg

DRUGS (1)
  1. BEXTRA [Suspect]
     Indication: PAIN
     Dosage: 40 MG (10 MG,4 IN 1 D),ORAL
     Route: 048
     Dates: start: 20030805

REACTIONS (1)
  - DEEP VEIN THROMBOSIS [None]
